FAERS Safety Report 23223622 (Version 4)
Quarter: 2024Q1

REPORT INFORMATION
  Report Type: Spontaneous
  Country: JP (occurrence: JP)
  Receive Date: 20231124
  Receipt Date: 20240104
  Transmission Date: 20240410
  Serious: Yes (Life-Threatening, Hospitalization, Other)
  Sender: FDA-Public Use
  Company Number: JP-BAXTER-2023BAX034711

PATIENT
  Age: 69 Year
  Sex: Female
  Weight: 37.8 kg

DRUGS (7)
  1. REGUNEAL HCA [Suspect]
     Active Substance: CALCIUM CHLORIDE\DEXTROSE MONOHYDRATE\HYDROCHLORIC ACID\MAGNESIUM CHLORIDE\SODIUM BICARBONATE\SODIUM
     Indication: End stage renal disease
     Dosage: 1500 ML X 3/DAY
     Route: 033
     Dates: start: 20170620, end: 20230304
  2. EXTRANEAL [Suspect]
     Active Substance: CALCIUM CHLORIDE\ICODEXTRIN\MAGNESIUM CHLORIDE\SODIUM CHLORIDE\SODIUM LACTATE
     Indication: End stage renal disease
     Dosage: 2000 ML X1/DAY
     Route: 033
     Dates: start: 20230131, end: 20230304
  3. FUROSEMIDE [Concomitant]
     Active Substance: FUROSEMIDE
     Dosage: 120 MG/DAY
     Route: 048
  4. TOLVAPTAN [Concomitant]
     Active Substance: TOLVAPTAN
     Dosage: 7.5 G/DAY
     Route: 048
  5. EVOCALCET [Concomitant]
     Active Substance: EVOCALCET
     Dosage: 3 MG/DAY
     Route: 048
  6. DAPRODUSTAT [Concomitant]
     Active Substance: DAPRODUSTAT
     Dosage: 4 MG/DAY
     Route: 048
  7. TETRAFERRIC TRICITRATE DECAHYDRATE [Concomitant]
     Active Substance: TETRAFERRIC TRICITRATE DECAHYDRATE
     Dosage: 750 MG/DAY (FERRIC CITRATE HYDRATE)
     Route: 048

REACTIONS (8)
  - Encapsulating peritoneal sclerosis [Recovering/Resolving]
  - Abdominal pain lower [Not Recovered/Not Resolved]
  - Decreased appetite [Unknown]
  - Nausea [Unknown]
  - Vomiting [Unknown]
  - Peritoneal fluid analysis abnormal [Unknown]
  - Hyperplasia [Unknown]
  - Intestinal dilatation [Unknown]

NARRATIVE: CASE EVENT DATE: 20230101
